FAERS Safety Report 7794462-X (Version None)
Quarter: 2011Q3

REPORT INFORMATION
  Report Type: 
  Country: None (occurrence: None)
  Receive Date: 20110929
  Receipt Date: 20110920
  Transmission Date: 20111222
  Serious: Yes (Other)
  Sender: FDA-Public Use
  Company Number: 2010EU006157

PATIENT
  Sex: Male

DRUGS (2)
  1. ELOCON [Concomitant]
  2. TACROLIMUS [Suspect]
     Indication: DERMATITIS ATOPIC
     Dosage: 0.1% PM, TOPICAL
     Route: 061
     Dates: start: 20000929, end: 20010629

REACTIONS (5)
  - LICHENIFICATION [None]
  - PAPULE [None]
  - LIPOMA [None]
  - PRURIGO [None]
  - LYMPHADENOPATHY [None]
